FAERS Safety Report 7346403-7 (Version None)
Quarter: 2011Q1

REPORT INFORMATION
  Report Type: 
  Country: None (occurrence: None)
  Receive Date: 20110311
  Receipt Date: 20110303
  Transmission Date: 20110831
  Serious: Yes (Life-Threatening, Hospitalization, Other)
  Sender: FDA-Public Use
  Company Number: US-RB-018977-10

PATIENT
  Age: 37 Year
  Sex: Female

DRUGS (7)
  1. SUBOXONE [Suspect]
     Indication: DRUG DEPENDENCE
     Dosage: USED VARIOUS DOSES
     Route: 060
     Dates: start: 20090101, end: 20101128
  2. SUBOXONE [Suspect]
     Indication: DRUG DEPENDENCE
     Route: 060
     Dates: start: 20101101, end: 20101101
  3. SUBOXONE [Suspect]
     Route: 060
     Dates: start: 20110131
  4. KLONOPIN [Concomitant]
     Indication: ANXIETY
     Route: 065
  5. PROZAC [Concomitant]
     Indication: DEPRESSION
     Route: 065
  6. TOPAMAX [Suspect]
     Indication: PRODUCT USED FOR UNKNOWN INDICATION
     Dosage: UNKNOWN DOSING DETAILS
     Route: 065
  7. DEPAKOTE [Concomitant]
     Indication: MIGRAINE
     Route: 065

REACTIONS (8)
  - PNEUMONIA [None]
  - NERVOUSNESS [None]
  - PULMONARY OEDEMA [None]
  - INTENTIONAL DRUG MISUSE [None]
  - TENSION HEADACHE [None]
  - SWELLING FACE [None]
  - OXYGEN SATURATION DECREASED [None]
  - SUBSTANCE ABUSE [None]
